FAERS Safety Report 6015436-5 (Version None)
Quarter: 2008Q4

REPORT INFORMATION
  Report Type: 
  Country: None (occurrence: None)
  Receive Date: 20081222
  Receipt Date: 20081210
  Transmission Date: 20090506
  Serious: Yes (Hospitalization)
  Sender: FDA-Public Use
  Company Number: PHHY2008AR31332

PATIENT
  Age: 63 Year
  Sex: Female

DRUGS (1)
  1. LAMISIL [Suspect]
     Indication: ONYCHOMYCOSIS
     Dosage: 1 TABLET DAILY
     Route: 048
     Dates: start: 20080301, end: 20080723

REACTIONS (2)
  - ABDOMINAL DISCOMFORT [None]
  - HAEMATEMESIS [None]
